FAERS Safety Report 19506685 (Version 1)
Quarter: 2021Q3

REPORT INFORMATION
  Report Type: Report from Study
  Country: DE (occurrence: DE)
  Receive Date: 20210708
  Receipt Date: 20210708
  Transmission Date: 20211014
  Serious: Yes (Hospitalization)
  Sender: FDA-Public Use
  Company Number: DE-CELGENEUS-DEU-20201204683

PATIENT
  Age: 58 Year
  Sex: Female
  Weight: 80 kg

DRUGS (7)
  1. DURVALUMAB. [Suspect]
     Active Substance: DURVALUMAB
     Indication: DUCTAL ADENOCARCINOMA OF PANCREAS
     Dosage: 1500 MILLIGRAM
     Route: 041
     Dates: start: 20201109, end: 20201207
  2. GEMCITABINE. [Suspect]
     Active Substance: GEMCITABINE
     Indication: OFF LABEL USE
  3. LENALIDOMIDE [Suspect]
     Active Substance: LENALIDOMIDE
     Indication: DUCTAL ADENOCARCINOMA OF PANCREAS
     Dosage: 10 MILLIGRAM
     Route: 048
     Dates: start: 20201109, end: 20201210
  4. PANTOPRAZOLE [Concomitant]
     Active Substance: PANTOPRAZOLE
     Indication: PROPHYLAXIS
     Dosage: 20 MILLIGRAM
     Route: 048
     Dates: start: 20201212, end: 202012
  5. ABRAXANE [Suspect]
     Active Substance: PACLITAXEL
     Indication: DUCTAL ADENOCARCINOMA OF PANCREAS
     Dosage: 189.1 MILLIGRAM
     Route: 041
     Dates: start: 20200810, end: 20201026
  6. GEMCITABINE. [Suspect]
     Active Substance: GEMCITABINE
     Indication: DUCTAL ADENOCARCINOMA OF PANCREAS
     Dosage: 1512.77 MILLIGRAM
     Route: 041
     Dates: start: 20200810, end: 20201026
  7. AZACITIDINE. [Suspect]
     Active Substance: AZACITIDINE
     Indication: DUCTAL ADENOCARCINOMA OF PANCREAS
     Dosage: 56.73 MILLIGRAM
     Route: 058
     Dates: start: 20200803, end: 20201009

REACTIONS (1)
  - Neuritis cranial [Recovered/Resolved]

NARRATIVE: CASE EVENT DATE: 20201207
